FAERS Safety Report 7564935-3 (Version None)
Quarter: 2011Q2

REPORT INFORMATION
  Report Type: 
  Country: None (occurrence: None)
  Receive Date: 20110622
  Receipt Date: 20110225
  Transmission Date: 20111010
  Serious: Yes (Other)
  Sender: FDA-Public Use
  Company Number: US-MYLANLABS-2011S1003881

PATIENT
  Age: 26 Year
  Sex: Female

DRUGS (4)
  1. CLOZAPINE [Suspect]
     Indication: SCHIZOPHRENIA
     Route: 048
     Dates: start: 20110215, end: 20110222
  2. CLOZAPINE [Suspect]
     Route: 048
     Dates: start: 20110215, end: 20110222
  3. CLOZAPINE [Suspect]
     Route: 048
     Dates: start: 20110225
  4. CLOZAPINE [Suspect]
     Route: 048
     Dates: start: 20110225

REACTIONS (2)
  - LEUKOPENIA [None]
  - GRANULOCYTOPENIA [None]
